FAERS Safety Report 16958199 (Version 4)
Quarter: 2020Q3

REPORT INFORMATION
  Report Type: Report from Study
  Country: DE (occurrence: DE)
  Receive Date: 20191024
  Receipt Date: 20200805
  Transmission Date: 20201102
  Serious: Yes (Hospitalization)
  Sender: FDA-Public Use
  Company Number: DE-JNJFOC-20191026551

PATIENT
  Age: 5 Decade
  Sex: Female
  Weight: 59 kg

DRUGS (12)
  1. HYDROMORPHONE [Concomitant]
     Active Substance: HYDROMORPHONE
     Indication: ILLNESS
     Route: 065
     Dates: end: 20191111
  2. PANTOPRAZOLE [Concomitant]
     Active Substance: PANTOPRAZOLE
     Indication: PREMEDICATION
     Route: 065
     Dates: end: 20191111
  3. ZOFRAN [Concomitant]
     Active Substance: ONDANSETRON HYDROCHLORIDE
     Indication: PREMEDICATION
     Route: 065
     Dates: start: 20190717, end: 20191111
  4. TRACUTIL                           /01597201/ [Concomitant]
     Indication: NUTRITIONAL SUPPLEMENTATION
     Dosage: ADD ON FOR NUTRITION
     Route: 065
     Dates: end: 20191111
  5. FRAXIPARINE [Concomitant]
     Active Substance: NADROPARIN CALCIUM
     Indication: PROPHYLAXIS
     Dosage: 2850 IE/0.3ML; 0?0?1?0
     Route: 065
     Dates: end: 20191011
  6. PREGABALIN. [Concomitant]
     Active Substance: PREGABALIN
     Dosage: 20MG/ML: 3?3?3?0
     Route: 065
     Dates: start: 20190924, end: 20191111
  7. TRABECTEDIN [Suspect]
     Active Substance: TRABECTEDIN
     Indication: SOFT TISSUE SARCOMA
     Dosage: CYCLE 1?4
     Route: 042
     Dates: start: 20190717
  8. MIRTAZAPINE. [Concomitant]
     Active Substance: MIRTAZAPINE
     Indication: ILLNESS
     Route: 065
     Dates: end: 20191111
  9. NUTRIFLEX LIPID                    /01916701/ [Concomitant]
     Indication: NUTRITIONAL SUPPLEMENTATION
     Dosage: 2.5I; 0?0?1?0
     Route: 065
     Dates: end: 20191011
  10. NIVOLUMAB [Suspect]
     Active Substance: NIVOLUMAB
     Indication: SOFT TISSUE SARCOMA
     Dosage: CYCLE 2?4
     Route: 065
     Dates: start: 20190807
  11. SMOFKABIVEN [Concomitant]
     Active Substance: AMINO ACIDS\DEXTROSE\ELECTROLYTES NOS\SOYBEAN OIL
     Indication: NUTRITIONAL SUPPLEMENTATION
     Dosage: PACKAGE OVERNIGHT ADD ON FOR NUTRITION
     Route: 065
     Dates: end: 20191111
  12. CERNEVIT [Concomitant]
     Active Substance: VITAMINS
     Dosage: 0?0?1?0
     Route: 065
     Dates: end: 20191111

REACTIONS (1)
  - Pyrexia [Recovered/Resolved]

NARRATIVE: CASE EVENT DATE: 20191011
